FAERS Safety Report 8907221 (Version 1)
Quarter: 2012Q4

REPORT INFORMATION
  Report Type: 
  Country: US (occurrence: US)
  Receive Date: 20121114
  Receipt Date: 20121114
  Transmission Date: 20130627
  Serious: Yes (Death)
  Sender: FDA-Public Use
  Company Number: US-INCYTE CORPORATION-2012IN002290

PATIENT
  Age: 86 Year
  Sex: Female

DRUGS (11)
  1. JAKAFI [Suspect]
     Indication: MYELOPROLIFERATIVE DISORDER
     Dosage: 10 mg, qd
     Route: 048
  2. FUROSEMIDE [Concomitant]
     Dosage: 20 mg, qd
  3. SIMVASTATIN [Concomitant]
     Dosage: 20 mg, UNK
  4. HYDROCHLOROTHIAZIDE [Concomitant]
     Dosage: 25 mg, UNK
  5. LISINOPRIL [Concomitant]
     Dosage: 40 mg, UNK
  6. BYSTOLIC [Concomitant]
     Dosage: 5 mg, UNK
  7. ALLOPURINOL [Concomitant]
     Dosage: 300 mg, UNK
  8. KLOR-CON [Concomitant]
     Dosage: 10 mEq, UNK
  9. RANITIDINE [Concomitant]
     Dosage: 150 mg, UNK
  10. MEGACE [Concomitant]
     Dosage: 625 mg, (1 tsp daily)
  11. SPIRIVA [Concomitant]
     Dosage: 18 mcg, (1 puff daily)

REACTIONS (2)
  - Death [Fatal]
  - Diarrhoea [Unknown]
